FAERS Safety Report 9888668 (Version 1)
Quarter: 2014Q1

REPORT INFORMATION
  Report Type: Spontaneous
  Country: US (occurrence: None)
  Receive Date: 20140210
  Receipt Date: 20140210
  Transmission Date: 20141002
  Serious: Yes (Other)
  Sender: FDA-Public Use
  Company Number: None

PATIENT
  Age: 58 Year
  Sex: Female
  Weight: 77.11 kg

DRUGS (1)
  1. WELCHOL 3.75 G PACKET, DAIICHI [Suspect]
     Indication: BLOOD CHOLESTEROL
     Dosage: 1 PKT ONCE DAILY TAKEN BY MOUTH
     Route: 048
     Dates: start: 20131113, end: 20131119

REACTIONS (4)
  - Myalgia [None]
  - Pain in extremity [None]
  - Back pain [None]
  - Sensation of pressure [None]
